FAERS Safety Report 12265237 (Version 1)
Quarter: 2016Q2

REPORT INFORMATION
  Report Type: Report from Study
  Country: CA (occurrence: CA)
  Receive Date: 20160413
  Receipt Date: 20160413
  Transmission Date: 20160815
  Serious: Yes (Other)
  Sender: FDA-Public Use
  Company Number: CA-JNJFOC-20160406516

PATIENT
  Age: 21 Year
  Sex: Male
  Weight: 84 kg

DRUGS (2)
  1. REMICADE [Suspect]
     Active Substance: INFLIXIMAB
     Indication: CROHN^S DISEASE
     Route: 042
     Dates: start: 20150429
  2. IMURAN [Concomitant]
     Active Substance: AZATHIOPRINE
     Dosage: ON HOLD
     Route: 065

REACTIONS (9)
  - Tooth extraction [Unknown]
  - Off label use [Unknown]
  - Product use issue [Unknown]
  - Abdominal pain [Unknown]
  - Weight decreased [Unknown]
  - Nausea [Unknown]
  - Fistula [Unknown]
  - Decreased appetite [Unknown]
  - Diarrhoea [Unknown]

NARRATIVE: CASE EVENT DATE: 20150429
